FAERS Safety Report 12762996 (Version 2)
Quarter: 2016Q4

REPORT INFORMATION
  Report Type: Spontaneous
  Country: US (occurrence: US)
  Receive Date: 20160920
  Receipt Date: 20161114
  Transmission Date: 20170207
  Serious: Yes (Death)
  Sender: FDA-Public Use
  Company Number: US-INCYTE CORPORATION-2016IN005264

PATIENT
  Sex: Female
  Weight: 58 kg

DRUGS (1)
  1. JAKAFI [Suspect]
     Active Substance: RUXOLITINIB
     Indication: SPLENOMEGALY
     Dosage: 10 MG, BID
     Route: 048
     Dates: start: 20160408

REACTIONS (4)
  - Diarrhoea [Unknown]
  - Off label use [Unknown]
  - Balance disorder [Unknown]
  - Cerebral haemorrhage [Fatal]
